FAERS Safety Report 4516103-7 (Version None)
Quarter: 2004Q4

REPORT INFORMATION
  Report Type: 
  Country: None (occurrence: None)
  Receive Date: 20041129
  Receipt Date: 20041119
  Transmission Date: 20050328
  Serious: Yes (Hospitalization)
  Sender: FDA-Public Use
  Company Number: 2004-06-1717

PATIENT
  Age: 15 Year
  Sex: Male
  Weight: 51 kg

DRUGS (4)
  1. NASONEX [Suspect]
     Indication: RHINITIS ALLERGIC
     Dosage: 50 MCG BID NASAL SPRAY
     Route: 045
     Dates: start: 20040503, end: 20040508
  2. MINOCIN [Suspect]
     Indication: ACNE
     Dosage: 100 MG QD ORAL
     Route: 048
     Dates: start: 20040503, end: 20040508
  3. CROMOGLICIC ACID OPHTHALMIC SOLUTION [Suspect]
     Indication: RHINITIS ALLERGIC
     Dosage: 6 QD INTRAOCULAR
     Route: 031
     Dates: start: 20040503, end: 20040508
  4. LEVOCETIRIZINE [Suspect]
     Indication: RHINITIS ALLERGIC
     Dosage: 5 MG QD ORAL
     Route: 048
     Dates: start: 20040503, end: 20040508

REACTIONS (23)
  - ALANINE AMINOTRANSFERASE INCREASED [None]
  - ASPARTATE AMINOTRANSFERASE INCREASED [None]
  - BLOOD ALKALINE PHOSPHATASE INCREASED [None]
  - CHOLESTASIS [None]
  - COUGH [None]
  - CYTOLYTIC HEPATITIS [None]
  - DRUG RASH WITH EOSINOPHILIA AND SYSTEMIC SYMPTOMS [None]
  - ENANTHEMA [None]
  - EOSINOPHILIA [None]
  - FACE OEDEMA [None]
  - HYPERHIDROSIS [None]
  - HYPERSENSITIVITY [None]
  - LOCALISED OEDEMA [None]
  - LUNG DISORDER [None]
  - LYMPHADENOPATHY [None]
  - OEDEMA [None]
  - OXYGEN SATURATION DECREASED [None]
  - PYREXIA [None]
  - RASH ERYTHEMATOUS [None]
  - RASH PAPULAR [None]
  - RASH PUSTULAR [None]
  - RASH VESICULAR [None]
  - SKIN LESION [None]
